FAERS Safety Report 14761796 (Version 1)
Quarter: 2018Q2

REPORT INFORMATION
  Report Type: Spontaneous
  Country: US (occurrence: US)
  Receive Date: 20180416
  Receipt Date: 20180416
  Transmission Date: 20180711
  Serious: No
  Sender: FDA-Public Use
  Company Number: US-GALDERMA-US18003097

PATIENT
  Age: 61 Year
  Sex: Female

DRUGS (9)
  1. PROACTIV MD BALANCING TONER [Concomitant]
     Active Substance: COSMETICS
     Route: 061
     Dates: start: 201705, end: 2017
  2. PROACTIV SOLUTION DAILY PROTECTION PLUS SUNSCREEN SPF 30 [Suspect]
     Active Substance: AVOBENZONE\HOMOSALATE\OCTINOXATE\OCTISALATE\OXYBENZONE
     Indication: PRODUCT USED FOR UNKNOWN INDICATION
     Route: 061
     Dates: start: 201705, end: 2017
  3. PROACTIV GREEN TEA MOISTURIZER [Concomitant]
     Active Substance: COSMETICS
     Route: 061
     Dates: start: 201705, end: 2017
  4. PROACTIV GENTLE FORMULA CLARIFYING DAY LOTION [Concomitant]
     Route: 061
     Dates: start: 201705, end: 2017
  5. PROACTIV MD ADAPALENE ACNE TREATMENT [Suspect]
     Active Substance: ADAPALENE
     Indication: PRODUCT USED FOR UNKNOWN INDICATION
     Dosage: 0.1%
     Route: 061
     Dates: start: 201705, end: 2017
  6. PROACTIV GENTLE FORMULA CLARIFYING TONER [Concomitant]
     Route: 061
     Dates: start: 201705, end: 2017
  7. PROACTIV GENTLE FORMULA CLARIFYING CLEANSER [Concomitant]
     Active Substance: SALICYLIC ACID
     Route: 061
     Dates: start: 201705, end: 2017
  8. PROACTIV MD DEEP CLEANSING FACE WASH [Concomitant]
     Active Substance: COSMETICS
     Route: 061
     Dates: start: 201705, end: 2017
  9. PROACTIV CLEANSING BAR [Concomitant]
     Route: 061
     Dates: start: 201705, end: 2017

REACTIONS (3)
  - Inappropriate schedule of drug administration [Recovered/Resolved]
  - Rash [Recovered/Resolved]
  - Overdose [Recovered/Resolved]

NARRATIVE: CASE EVENT DATE: 201705
